FAERS Safety Report 25537636 (Version 1)
Quarter: 2025Q3

REPORT INFORMATION
  Report Type: Report from Study
  Country: ID (occurrence: ID)
  Receive Date: 20250710
  Receipt Date: 20250710
  Transmission Date: 20251020
  Serious: Yes (Other)
  Sender: AUROBINDO
  Company Number: ID-AUROBINDO-AUR-APL-2025-034097

PATIENT
  Age: 51 Year
  Sex: Female

DRUGS (2)
  1. AMLODIPINE [Suspect]
     Active Substance: AMLODIPINE BESYLATE
     Indication: Hypertension
     Route: 065
  2. METFORMIN [Concomitant]
     Active Substance: METFORMIN HYDROCHLORIDE
     Indication: Diabetes mellitus
     Route: 065

REACTIONS (4)
  - Glaucoma [Unknown]
  - Visual impairment [Unknown]
  - Corneal dystrophy [Unknown]
  - Iridocorneal endothelial syndrome [Unknown]
